FAERS Safety Report 9717001 (Version 1)
Quarter: 2013Q4

REPORT INFORMATION
  Report Type: Spontaneous
  Country: US (occurrence: None)
  Receive Date: 20131125
  Receipt Date: 20131125
  Transmission Date: 20140711
  Serious: Yes (Other)
  Sender: FDA-Public Use
  Company Number: 2013P1021138

PATIENT
  Age: 45 Year
  Sex: Female

DRUGS (2)
  1. DIPHENHYDRAMINE [Suspect]
  2. ACETAMINOPHEN [Suspect]

REACTIONS (4)
  - Unresponsive to stimuli [None]
  - Overdose [None]
  - Blood pressure increased [None]
  - Respiratory rate increased [None]
